FAERS Safety Report 10018466 (Version 2)
Quarter: 2014Q1

REPORT INFORMATION
  Report Type: Spontaneous
  Country: JP (occurrence: JP)
  Receive Date: 20140318
  Receipt Date: 20140328
  Transmission Date: 20141002
  Serious: Yes (Hospitalization)
  Sender: FDA-Public Use
  Company Number: JP-009507513-1403JPN007563

PATIENT
  Age: 44 Year
  Sex: Female

DRUGS (2)
  1. MAXALT [Suspect]
     Indication: MIGRAINE
     Dosage: UNK
     Route: 048
  2. SUMATRIPTAN [Suspect]
     Indication: MIGRAINE
     Route: 058

REACTIONS (1)
  - Cerebellar infarction [Recovered/Resolved]
